FAERS Safety Report 8597147-5 (Version None)
Quarter: 2012Q3

REPORT INFORMATION
  Report Type: 
  Country: None (occurrence: None)
  Receive Date: 20120816
  Receipt Date: 20120807
  Transmission Date: 20120928
  Serious: No
  Sender: FDA-Public Use
  Company Number: US-BIOGENIDEC-2012BI030291

PATIENT
  Sex: Female

DRUGS (1)
  1. TYSABRI [Suspect]
     Indication: MULTIPLE SCLEROSIS
     Route: 042
     Dates: start: 20110603

REACTIONS (7)
  - FALL [None]
  - BLOOD PRESSURE ORTHOSTATIC ABNORMAL [None]
  - BLOOD GLUCOSE INCREASED [None]
  - VISUAL IMPAIRMENT [None]
  - SKELETAL INJURY [None]
  - GAIT DISTURBANCE [None]
  - INSOMNIA [None]
